FAERS Safety Report 23530983 (Version 1)
Quarter: 2024Q1

REPORT INFORMATION
  Report Type: Report from Study
  Country: US (occurrence: US)
  Receive Date: 20240216
  Receipt Date: 20240216
  Transmission Date: 20240410
  Serious: Yes (Other)
  Sender: FDA-Public Use
  Company Number: US-MYLANLABS-2023M1003247

PATIENT
  Age: 58 Year
  Sex: Female
  Weight: 97.52 kg

DRUGS (3)
  1. GLATIRAMER ACETATE [Suspect]
     Active Substance: GLATIRAMER ACETATE
     Indication: Multiple sclerosis
     Dosage: 40 MILLIGRAM, 3XW
     Route: 058
  2. GLATIRAMER ACETATE [Suspect]
     Active Substance: GLATIRAMER ACETATE
     Indication: Relapsing-remitting multiple sclerosis
  3. DEVICE [Suspect]
     Active Substance: DEVICE
     Indication: Multiple sclerosis
     Dosage: UNK
     Route: 058

REACTIONS (12)
  - Anaphylactic reaction [Unknown]
  - Injection site pain [Unknown]
  - Injection site mass [Unknown]
  - Weight increased [Unknown]
  - Oral mucosal erythema [Unknown]
  - Arthralgia [Unknown]
  - Dyspnoea [Unknown]
  - Motor dysfunction [Unknown]
  - Needle issue [Unknown]
  - Product dose omission issue [Unknown]
  - Device use issue [Recovered/Resolved]
  - Lack of injection site rotation [Unknown]

NARRATIVE: CASE EVENT DATE: 20230106
